FAERS Safety Report 24736031 (Version 1)
Quarter: 2024Q4

REPORT INFORMATION
  Report Type: Spontaneous
  Country: US (occurrence: US)
  Receive Date: 20241216
  Receipt Date: 20241216
  Transmission Date: 20250114
  Serious: No
  Sender: Haleon PLC
  Company Number: US-HALEON-2214969

PATIENT

DRUGS (8)
  1. ADVIL DUAL ACTION WITH ACETAMINOPHEN BACK PAIN [Suspect]
     Active Substance: ACETAMINOPHEN\IBUPROFEN
     Indication: Headache
  2. ADVIL DUAL ACTION WITH ACETAMINOPHEN BACK PAIN [Suspect]
     Active Substance: ACETAMINOPHEN\IBUPROFEN
     Indication: Toothache
  3. ADVIL DUAL ACTION WITH ACETAMINOPHEN BACK PAIN [Suspect]
     Active Substance: ACETAMINOPHEN\IBUPROFEN
     Indication: Myalgia
  4. ADVIL DUAL ACTION WITH ACETAMINOPHEN BACK PAIN [Suspect]
     Active Substance: ACETAMINOPHEN\IBUPROFEN
     Indication: Back pain
  5. ADVIL DUAL ACTION WITH ACETAMINOPHEN BACK PAIN [Suspect]
     Active Substance: ACETAMINOPHEN\IBUPROFEN
     Indication: Dysmenorrhoea
  6. ADVIL DUAL ACTION WITH ACETAMINOPHEN BACK PAIN [Suspect]
     Active Substance: ACETAMINOPHEN\IBUPROFEN
     Indication: Pyrexia
  7. ADVIL DUAL ACTION WITH ACETAMINOPHEN BACK PAIN [Suspect]
     Active Substance: ACETAMINOPHEN\IBUPROFEN
     Indication: Swelling
  8. ADVIL DUAL ACTION WITH ACETAMINOPHEN BACK PAIN [Suspect]
     Active Substance: ACETAMINOPHEN\IBUPROFEN
     Indication: Inflammation

REACTIONS (2)
  - Drug effective for unapproved indication [Unknown]
  - Product use in unapproved indication [Unknown]
